FAERS Safety Report 17220431 (Version 1)
Quarter: 2019Q4

REPORT INFORMATION
  Report Type: Spontaneous
  Country: FR (occurrence: FR)
  Receive Date: 20191231
  Receipt Date: 20191231
  Transmission Date: 20200122
  Serious: Yes (Hospitalization)
  Sender: FDA-Public Use
  Company Number: FR-CANTON LABORATORIES, LLC-2078381

PATIENT
  Age: 77 Year
  Sex: Female

DRUGS (8)
  1. ASPEGIC [Concomitant]
     Route: 048
  2. RAMIPRIL. [Suspect]
     Active Substance: RAMIPRIL
     Route: 048
     Dates: start: 2000
  3. NAPROSYN [Suspect]
     Active Substance: NAPROXEN
     Indication: DYSLIPIDAEMIA
     Route: 048
     Dates: end: 20190920
  4. NOVORAPID [Concomitant]
     Active Substance: INSULIN ASPART
     Route: 058
  5. NORMACOL [Concomitant]
     Active Substance: HERBALS\KARAYA GUM
     Route: 048
     Dates: start: 20190918, end: 20190920
  6. FENOFIBRATE. [Concomitant]
     Active Substance: FENOFIBRATE
     Route: 048
  7. LANTUS [Concomitant]
     Active Substance: INSULIN GLARGINE
     Route: 058
  8. SPASFON [Concomitant]
     Route: 048
     Dates: start: 20190918, end: 20190920

REACTIONS (1)
  - Hyponatraemia [Recovered/Resolved]

NARRATIVE: CASE EVENT DATE: 20190919
